FAERS Safety Report 21350843 (Version 2)
Quarter: 2022Q4

REPORT INFORMATION
  Report Type: Spontaneous
  Country: TR (occurrence: TR)
  Receive Date: 20220919
  Receipt Date: 20221004
  Transmission Date: 20230113
  Serious: Yes (Death, Hospitalization, Other)
  Sender: FDA-Public Use
  Company Number: TR-ASTELLAS-2021US043175

PATIENT
  Age: 54 Year
  Sex: Male

DRUGS (15)
  1. XTANDI [Suspect]
     Active Substance: ENZALUTAMIDE
     Indication: Prostate cancer
     Dosage: UNK UNK, UNKNOWN FREQ.
     Route: 065
     Dates: start: 201801
  2. ELIGARD [Suspect]
     Active Substance: LEUPROLIDE ACETATE
     Indication: Prostate cancer
     Dosage: UNK UNK, UNKNOWN FREQ.
     Route: 065
  3. LUTETIUM LU-177 VIPIVOTIDE TETRAXETAN [Suspect]
     Active Substance: LUTETIUM LU-177 VIPIVOTIDE TETRAXETAN
     Indication: Prostate cancer
     Route: 065
     Dates: start: 20180329, end: 20180921
  4. LUTETIUM LU-177 VIPIVOTIDE TETRAXETAN [Suspect]
     Active Substance: LUTETIUM LU-177 VIPIVOTIDE TETRAXETAN
     Dosage: UNK UNK, UNKNOWN FREQ.
     Route: 065
     Dates: start: 20190530
  5. CASODEX [Suspect]
     Active Substance: BICALUTAMIDE
     Indication: Prostate cancer
     Dosage: UNK UNK, UNKNOWN FREQ.
     Route: 065
  6. CASODEX [Suspect]
     Active Substance: BICALUTAMIDE
     Dosage: 150 MG, UNKNOWN FREQ. (INCREASED DOSE)
     Route: 065
     Dates: start: 201612
  7. DOCETAXEL [Suspect]
     Active Substance: DOCETAXEL
     Indication: Prostate cancer
     Dosage: UNK UNK, UNKNOWN FREQ.
     Route: 065
     Dates: start: 201601, end: 201605
  8. DOCETAXEL [Suspect]
     Active Substance: DOCETAXEL
     Dosage: UNK UNK, UNKNOWN FREQ.
     Route: 065
     Dates: start: 2016, end: 201606
  9. GRANULOCYTE COLONY-STIMULATING FACTOR NOS [Suspect]
     Active Substance: GRANULOCYTE COLONY-STIMULATING FACTOR NOS
     Indication: Prophylaxis
     Dosage: UNK UNK, UNKNOWN FREQ.
     Route: 065
  10. GOSERELIN [Suspect]
     Active Substance: GOSERELIN
     Indication: Prostate cancer
     Dosage: UNK UNK, MONTHLY
     Route: 065
     Dates: start: 201612
  11. CABAZITAXEL [Suspect]
     Active Substance: CABAZITAXEL
     Indication: Product used for unknown indication
     Route: 065
     Dates: start: 201703
  12. CABAZITAXEL [Suspect]
     Active Substance: CABAZITAXEL
     Route: 065
     Dates: start: 201703
  13. CABAZITAXEL [Suspect]
     Active Substance: CABAZITAXEL
     Route: 065
  14. CABAZITAXEL [Suspect]
     Active Substance: CABAZITAXEL
     Dosage: 40 MG, UNKNOWN FREQ. (REDUCED DOSE FROM 52 MG TO 40 MG)
     Route: 065
     Dates: start: 201703, end: 20180112
  15. ZOLEDRONIC ACID [Suspect]
     Active Substance: ZOLEDRONIC ACID
     Indication: Prostate cancer
     Dosage: UNK UNK, UNKNOWN FREQ.
     Route: 065

REACTIONS (9)
  - Malignant neoplasm progression [Fatal]
  - Weight loss poor [Unknown]
  - Fatigue [Unknown]
  - Gait disturbance [Unknown]
  - Platelet count decreased [Unknown]
  - Subdural haemorrhage [Unknown]
  - Prostatic specific antigen increased [Unknown]
  - Febrile neutropenia [Unknown]
  - Diarrhoea [Unknown]

NARRATIVE: CASE EVENT DATE: 20180101
